FAERS Safety Report 16647747 (Version 1)
Quarter: 2019Q3

REPORT INFORMATION
  Report Type: Spontaneous
  Country: GB (occurrence: GB)
  Receive Date: 20190730
  Receipt Date: 20190730
  Transmission Date: 20191004
  Serious: Yes (Other)
  Sender: FDA-Public Use
  Company Number: GB-JNJFOC-20190726873

PATIENT
  Sex: Female

DRUGS (1)
  1. STELARA [Suspect]
     Active Substance: USTEKINUMAB
     Indication: CROHN^S DISEASE
     Route: 058
     Dates: start: 20190227, end: 20190501

REACTIONS (3)
  - Head titubation [Not Recovered/Not Resolved]
  - Tongue spasm [Not Recovered/Not Resolved]
  - Tremor [Not Recovered/Not Resolved]
